FAERS Safety Report 7714571-0 (Version None)
Quarter: 2011Q3

REPORT INFORMATION
  Report Type: 
  Country: None (occurrence: None)
  Receive Date: 20110829
  Receipt Date: 20110823
  Transmission Date: 20111222
  Serious: Yes (Hospitalization)
  Sender: FDA-Public Use
  Company Number: US-JNJFOC-20110500373

PATIENT
  Sex: Male

DRUGS (3)
  1. LEVAQUIN [Suspect]
     Indication: PNEUMONIA
     Route: 048
     Dates: start: 20080201, end: 20090228
  2. LEVAQUIN [Suspect]
     Indication: ASTHMA
     Route: 048
     Dates: start: 20080201, end: 20090228
  3. LEVAQUIN [Suspect]
     Indication: UPPER RESPIRATORY TRACT INFECTION
     Route: 048
     Dates: start: 20080201, end: 20090228

REACTIONS (3)
  - EPICONDYLITIS [None]
  - TENDONITIS [None]
  - TENDON DISORDER [None]
